FAERS Safety Report 16950553 (Version 1)
Quarter: 2019Q4

REPORT INFORMATION
  Report Type: Spontaneous
  Country: US (occurrence: US)
  Receive Date: 20190902
  Receipt Date: 20190902
  Transmission Date: 20200122
  Serious: Yes (Death, Hospitalization)
  Sender: FDA-Public Use
  Company Number: None

PATIENT
  Age: 12 Year
  Sex: Female
  Weight: 29.9 kg

DRUGS (6)
  1. CYCLOPHOSPHAMIDE. [Suspect]
     Active Substance: CYCLOPHOSPHAMIDE
     Dates: end: 20190729
  2. METHOTREXATE. [Suspect]
     Active Substance: METHOTREXATE
     Dates: end: 20190805
  3. CYTARABINE. [Suspect]
     Active Substance: CYTARABINE
     Dates: end: 20190808
  4. ONCASPAR [Suspect]
     Active Substance: PEGASPARGASE
     Dates: end: 20190812
  5. THIOGUANINE (6-TG) [Suspect]
     Active Substance: THIOGUANINE ANHYDROUS
     Dates: end: 20190811
  6. VINCRISTINE SULFATE. [Suspect]
     Active Substance: VINCRISTINE SULFATE
     Dates: end: 20190819

REACTIONS (22)
  - Pseudomonal sepsis [None]
  - Fungaemia [None]
  - Acute respiratory distress syndrome [None]
  - Blood lactic acid abnormal [None]
  - Cardio-respiratory arrest [None]
  - Bradycardia [None]
  - Pulmonary haemorrhage [None]
  - Neutrophil count decreased [None]
  - Immunodeficiency [None]
  - Clostridium test positive [None]
  - Heart rate increased [None]
  - Septic shock [None]
  - Hypoxia [None]
  - Cardiac dysfunction [None]
  - Endocarditis [None]
  - Pulmonary embolism [None]
  - Pneumonia [None]
  - Unevaluable event [None]
  - Pleural effusion [None]
  - Pulmonary mass [None]
  - Agitation [None]
  - Bradyarrhythmia [None]

NARRATIVE: CASE EVENT DATE: 20190826
